FAERS Safety Report 5616064-3 (Version None)
Quarter: 2008Q1

REPORT INFORMATION
  Report Type: 
  Country: None (occurrence: None)
  Receive Date: 20080206
  Receipt Date: 20080125
  Transmission Date: 20080703
  Serious: Yes (Hospitalization)
  Sender: FDA-Public Use
  Company Number: JP-PFIZER INC-2008001991

PATIENT
  Sex: Male
  Weight: 53 kg

DRUGS (2)
  1. AMLODIPINE [Suspect]
     Indication: HYPERTENSION
     Route: 048
     Dates: start: 20070526, end: 20080106
  2. FLUTICASONE PROPIONATE [Concomitant]
     Route: 048

REACTIONS (2)
  - DIZZINESS POSTURAL [None]
  - LOSS OF CONSCIOUSNESS [None]
